FAERS Safety Report 8282282-1 (Version None)
Quarter: 2012Q2

REPORT INFORMATION
  Report Type: 
  Country: None (occurrence: None)
  Receive Date: 20120413
  Receipt Date: 20120404
  Transmission Date: 20120825
  Serious: Yes (Hospitalization)
  Sender: FDA-Public Use
  Company Number: US-JNJFOC-20111209518

PATIENT
  Sex: Female
  Weight: 87.5 kg

DRUGS (5)
  1. ANTIBIOTICS [Concomitant]
  2. FERREX 150 [Concomitant]
  3. REMICADE [Suspect]
     Indication: INFLAMMATORY BOWEL DISEASE
     Route: 042
     Dates: start: 20110223
  4. ACETAMINOPHEN [Concomitant]
  5. ANTIBIOTICS [Suspect]
     Indication: INFLAMMATORY BOWEL DISEASE

REACTIONS (2)
  - ANAL ABSCESS [None]
  - VULVAL ABSCESS [None]
